FAERS Safety Report 6416686-6 (Version None)
Quarter: 2009Q4

REPORT INFORMATION
  Report Type: 
  Country: None (occurrence: None)
  Receive Date: 20091027
  Receipt Date: 20091023
  Transmission Date: 20100525
  Serious: Yes (Other)
  Sender: FDA-Public Use
  Company Number: DE-WYE-G04711709

PATIENT
  Age: 64 Year
  Sex: Male
  Weight: 75 kg

DRUGS (1)
  1. BENEFIX [Suspect]
     Indication: FACTOR IX DEFICIENCY
     Dosage: 3000 IU 2X PER WEEK, UNKNOWN IF PERMANENTLY OR TEMP. DISCONTINUED
     Route: 042
     Dates: start: 19991101

REACTIONS (1)
  - MYOCARDIAL INFARCTION [None]
